FAERS Safety Report 7253710-5 (Version None)
Quarter: 2011Q1

REPORT INFORMATION
  Report Type: 
  Country: None (occurrence: None)
  Receive Date: 20110129
  Receipt Date: 20100129
  Transmission Date: 20110831
  Serious: No
  Sender: FDA-Public Use
  Company Number: US-ABBOTT-10P-163-0623618-00

PATIENT
  Sex: Female
  Weight: 88.53 kg

DRUGS (7)
  1. PENTASA [Concomitant]
     Indication: CROHN'S DISEASE
  2. PERCOCET [Concomitant]
     Indication: PRODUCT USED FOR UNKNOWN INDICATION
  3. HUMIRA [Suspect]
     Indication: CROHN'S DISEASE
     Dosage: LOADING DOSE 4 PENS
     Dates: start: 20091229, end: 20100113
  4. IRON [Concomitant]
     Indication: BLOOD IRON DECREASED
  5. IMURAN [Concomitant]
     Indication: CROHN'S DISEASE
  6. ATENOLOL [Concomitant]
     Indication: BLOOD PRESSURE
  7. PRENATAL VITAMIN WITH IRON [Concomitant]
     Indication: BLOOD IRON DECREASED

REACTIONS (1)
  - INCORRECT DOSE ADMINISTERED [None]
